FAERS Safety Report 14026319 (Version 2)
Quarter: 2017Q4

REPORT INFORMATION
  Report Type: Spontaneous
  Country: IN (occurrence: IN)
  Receive Date: 20170929
  Receipt Date: 20171012
  Transmission Date: 20180321
  Serious: Yes (Death, Hospitalization)
  Sender: FDA-Public Use
  Company Number: PHHY2017IN143038

PATIENT
  Age: 50 Year
  Sex: Male

DRUGS (1)
  1. PANOBINOSTAT [Suspect]
     Active Substance: PANOBINOSTAT
     Indication: PRODUCT USED FOR UNKNOWN INDICATION
     Dosage: 20 MG, UNK (AS INDICATED)
     Route: 048
     Dates: start: 20170828

REACTIONS (9)
  - Pneumonitis [Fatal]
  - Dyspnoea [Fatal]
  - Thrombocytopenia [Fatal]
  - Crepitations [Fatal]
  - Tremor [Fatal]
  - Speech disorder [Fatal]
  - Somnolence [Fatal]
  - Pyrexia [Fatal]
  - Decreased appetite [Fatal]

NARRATIVE: CASE EVENT DATE: 20170829
